FAERS Safety Report 13827688 (Version 2)
Quarter: 2018Q1

REPORT INFORMATION
  Report Type: Spontaneous
  Country: IT (occurrence: IT)
  Receive Date: 20170803
  Receipt Date: 20180302
  Transmission Date: 20180508
  Serious: Yes (Other)
  Sender: FDA-Public Use
  Company Number: IT-ASTRAZENECA-2017SE78696

PATIENT
  Age: 24334 Day
  Sex: Female

DRUGS (1)
  1. IRESSA [Suspect]
     Active Substance: GEFITINIB
     Indication: NON-SMALL CELL LUNG CANCER STAGE IV
     Route: 048
     Dates: start: 201611, end: 201612

REACTIONS (5)
  - Metastases to heart [Unknown]
  - Malignant neoplasm progression [Unknown]
  - Cough [Unknown]
  - Drug ineffective [Unknown]
  - Dysphonia [Unknown]

NARRATIVE: CASE EVENT DATE: 20161215
